FAERS Safety Report 9197604 (Version 2)
Quarter: 2013Q2

REPORT INFORMATION
  Report Type: Spontaneous
  Country: JP (occurrence: JP)
  Receive Date: 20130328
  Receipt Date: 20130528
  Transmission Date: 20140414
  Serious: Yes (Other)
  Sender: FDA-Public Use
  Company Number: JP-GLAXOSMITHKLINE-B0878648A

PATIENT
  Age: 56 Year
  Sex: Female
  Weight: 61 kg

DRUGS (6)
  1. HYCAMTIN [Suspect]
     Indication: OVARIAN CANCER RECURRENT
     Dosage: 1.36MGM2 PER DAY
     Route: 042
     Dates: start: 20120521, end: 20120525
  2. HYCAMTIN [Suspect]
     Indication: OVARIAN CANCER RECURRENT
     Dosage: 1.02MGM2 PER DAY
     Route: 042
     Dates: start: 20120625, end: 20120629
  3. FUNGUARD [Concomitant]
     Dosage: 50MG PER DAY
     Route: 042
     Dates: start: 20120529, end: 20120602
  4. MEROPEN [Concomitant]
     Dosage: 1G PER DAY
     Route: 042
     Dates: start: 20120529, end: 20120602
  5. NASEA [Concomitant]
     Dosage: .3MG PER DAY
     Route: 042
     Dates: start: 20120521, end: 20120525
  6. DECADRON [Concomitant]
     Dosage: 9.9MG PER DAY
     Route: 042
     Dates: start: 20120521, end: 20120522

REACTIONS (10)
  - Agranulocytosis [Unknown]
  - Decreased appetite [Unknown]
  - Fatigue [Unknown]
  - White blood cell count decreased [Unknown]
  - Neutrophil count decreased [Unknown]
  - Red blood cell count decreased [Recovering/Resolving]
  - Platelet count decreased [Recovering/Resolving]
  - Anaemia [Recovering/Resolving]
  - Headache [Unknown]
  - Oedema [Recovering/Resolving]
